FAERS Safety Report 26172668 (Version 1)
Quarter: 2025Q4

REPORT INFORMATION
  Report Type: Report from Study
  Country: BR (occurrence: BR)
  Receive Date: 20251218
  Receipt Date: 20251218
  Transmission Date: 20260118
  Serious: Yes (Other)
  Sender: ABBVIE
  Company Number: BR-ABBVIE-6589362

PATIENT
  Sex: Female

DRUGS (1)
  1. MIRVETUXIMAB SORAVTANSINE [Suspect]
     Active Substance: MIRVETUXIMAB SORAVTANSINE
     Indication: Ovarian cancer
     Route: 042

REACTIONS (3)
  - Neurotoxicity [Unknown]
  - Nervous system disorder [Unknown]
  - Movement disorder [Unknown]
